FAERS Safety Report 22004693 (Version 1)
Quarter: 2023Q1

REPORT INFORMATION
  Report Type: Spontaneous
  Country: US (occurrence: US)
  Receive Date: 20230217
  Receipt Date: 20230217
  Transmission Date: 20230418
  Serious: Yes (Death)
  Sender: FDA-Public Use
  Company Number: US-BAYER-2023A017032

PATIENT

DRUGS (1)
  1. ASPIRIN [Suspect]
     Active Substance: ASPIRIN
     Indication: Prophylaxis

REACTIONS (5)
  - Myocardial injury [Fatal]
  - Foetal cardiac disorder [Fatal]
  - Myocardial fibrosis [Fatal]
  - Dystrophic calcification [Fatal]
  - Foetal exposure during pregnancy [None]
